FAERS Safety Report 9727290 (Version 2)
Quarter: 2013Q4

REPORT INFORMATION
  Report Type: Spontaneous
  Country: US (occurrence: US)
  Receive Date: 20131203
  Receipt Date: 20131231
  Transmission Date: 20140711
  Serious: No
  Sender: FDA-Public Use
  Company Number: US-PFIZER INC-2013341060

PATIENT
  Sex: Male
  Weight: 72.56 kg

DRUGS (7)
  1. SUTENT [Suspect]
     Indication: PANCREATIC NEUROENDOCRINE TUMOUR
     Dosage: 37.5 MG, UNK
     Route: 048
     Dates: start: 201207, end: 201311
  2. SUTENT [Suspect]
     Dosage: 50 MG, CYCLIC DAILY (4 WEEKS ON 2 WEEKS OFF)
     Dates: start: 20130904
  3. SUTENT [Suspect]
     Dosage: 37.5 MG, CYCLIC DAILY (4 WEEKS ON 2 WEEKS OFF)
     Dates: start: 20131016
  4. SANDOSTATIN LAR [Concomitant]
  5. DIOVAN [Concomitant]
     Dosage: 80 MG, 1X/DAY
  6. LIPITOR [Concomitant]
     Dosage: 10 MG, 1X/DAY
  7. LEVOTHYROXINE [Concomitant]
     Dosage: 50 UG, 1X/DAY

REACTIONS (1)
  - Palmar-plantar erythrodysaesthesia syndrome [Not Recovered/Not Resolved]
